FAERS Safety Report 11438894 (Version 1)
Quarter: 2015Q3

REPORT INFORMATION
  Report Type: Spontaneous
  Country: IT (occurrence: None)
  Receive Date: 20150828
  Receipt Date: 20150828
  Transmission Date: 20151125
  Serious: Yes (Death, Hospitalization)
  Sender: FDA-Public Use
  Company Number: NSR_02215_2015

PATIENT
  Age: 82 Year
  Sex: Male

DRUGS (1)
  1. ALLOPURINOL (ALLOPURINOL) [Suspect]
     Active Substance: ALLOPURINOL
     Indication: HYPERURICAEMIA

REACTIONS (2)
  - Stevens-Johnson syndrome [None]
  - Cardiac failure acute [None]
